FAERS Safety Report 23332774 (Version 1)
Quarter: 2023Q4

REPORT INFORMATION
  Report Type: Spontaneous
  Country: US (occurrence: US)
  Receive Date: 20231222
  Receipt Date: 20231222
  Transmission Date: 20240110
  Serious: No
  Sender: FDA-Public Use
  Company Number: US-CTI BIOPHARMA-2023US04078

PATIENT

DRUGS (3)
  1. VONJO [Suspect]
     Active Substance: PACRITINIB
     Indication: Polycythaemia vera
     Dosage: 200 MG, BID
     Dates: start: 20230916
  2. OMEPRAZOLE [Concomitant]
     Active Substance: OMEPRAZOLE
  3. REMERON [Concomitant]
     Active Substance: MIRTAZAPINE

REACTIONS (3)
  - Urinary tract infection [Not Recovered/Not Resolved]
  - Retching [Unknown]
  - Nausea [Unknown]

NARRATIVE: CASE EVENT DATE: 20230916
